FAERS Safety Report 7669692-8 (Version None)
Quarter: 2011Q3

REPORT INFORMATION
  Report Type: 
  Country: None (occurrence: None)
  Receive Date: 20110803
  Receipt Date: 20110719
  Transmission Date: 20111222
  Serious: Yes (Other)
  Sender: FDA-Public Use
  Company Number: 2011MA009053

PATIENT
  Age: 34 Year
  Sex: Female

DRUGS (1)
  1. DICLOFENAC SODIUM [Suspect]
     Indication: HEADACHE
     Dosage: IM
     Route: 030

REACTIONS (2)
  - EMBOLIA CUTIS MEDICAMENTOSA [None]
  - SKIN GRAFT [None]
